FAERS Safety Report 4407178-4 (Version None)
Quarter: 2004Q3

REPORT INFORMATION
  Report Type: 
  Country: None (occurrence: None)
  Receive Date: 20040723
  Receipt Date: 20040723
  Transmission Date: 20050211
  Serious: Yes (Hospitalization)
  Sender: FDA-Public Use
  Company Number: None

PATIENT
  Age: 60 Year
  Sex: Male
  Weight: 98.8842 kg

DRUGS (2)
  1. XYLOCAINE W/ EPINEPHRENE [Suspect]
     Indication: NECK MASS
     Dates: start: 20040618, end: 20040618
  2. BUPIVACAINE [Suspect]

REACTIONS (4)
  - ANAPHYLACTIC REACTION [None]
  - SWELLING FACE [None]
  - TONGUE OEDEMA [None]
  - URTICARIA [None]
